FAERS Safety Report 6095711-9 (Version None)
Quarter: 2009Q1

REPORT INFORMATION
  Report Type: 
  Country: None (occurrence: None)
  Receive Date: 20090227
  Receipt Date: 20080521
  Transmission Date: 20090719
  Serious: No
  Sender: FDA-Public Use
  Company Number: A0730019A

PATIENT
  Sex: Female

DRUGS (2)
  1. LAMICTAL [Suspect]
     Indication: DRUG DISPENSING ERROR
  2. LOMOTIL [Suspect]
     Indication: INFLAMMATORY BOWEL DISEASE
     Dosage: 1TAB THREE TIMES PER DAY
     Route: 048

REACTIONS (1)
  - DRUG DISPENSING ERROR [None]
